FAERS Safety Report 8315018-6 (Version None)
Quarter: 2012Q2

REPORT INFORMATION
  Report Type: 
  Country: None (occurrence: None)
  Receive Date: 20120426
  Receipt Date: 20120329
  Transmission Date: 20120825
  Serious: No
  Sender: FDA-Public Use
  Company Number: US-MUTUAL PHARMACEUTICAL COMPANY, INC.-CLCY20120053

PATIENT
  Sex: 0

DRUGS (1)
  1. COLCRYS [Suspect]
     Indication: PROPHYLAXIS
     Route: 065

REACTIONS (2)
  - DIARRHOEA [None]
  - NAUSEA [None]
